FAERS Safety Report 13581852 (Version 1)
Quarter: 2017Q2

REPORT INFORMATION
  Report Type: Report from Study
  Country: CA (occurrence: CA)
  Receive Date: 20170525
  Receipt Date: 20170525
  Transmission Date: 20170830
  Serious: Yes (Hospitalization)
  Sender: FDA-Public Use
  Company Number: CA-JNJFOC-20170518292

PATIENT
  Age: 67 Year
  Sex: Female
  Weight: 58 kg

DRUGS (2)
  1. REMICADE [Suspect]
     Active Substance: INFLIXIMAB
     Indication: CROHN^S DISEASE
     Route: 042
     Dates: start: 20161216
  2. REMICADE [Suspect]
     Active Substance: INFLIXIMAB
     Indication: CROHN^S DISEASE
     Route: 042
     Dates: start: 20170516

REACTIONS (8)
  - Uterine leiomyoma [Recovered/Resolved with Sequelae]
  - Purulence [Recovered/Resolved with Sequelae]
  - Feeling hot [Recovered/Resolved]
  - Dyspnoea [Recovered/Resolved]
  - Vomiting [Recovered/Resolved]
  - Fistula [Recovered/Resolved with Sequelae]
  - Infusion related reaction [Recovered/Resolved]
  - Intestinal resection [Recovered/Resolved with Sequelae]

NARRATIVE: CASE EVENT DATE: 20170408
